FAERS Safety Report 7392072-X (Version None)
Quarter: 2011Q1

REPORT INFORMATION
  Report Type: 
  Country: None (occurrence: None)
  Receive Date: 20110323
  Receipt Date: 20110304
  Transmission Date: 20110831
  Serious: Yes (Other)
  Sender: FDA-Public Use
  Company Number: 20110179

PATIENT
  Sex: Female

DRUGS (1)
  1. DEXAMETHASONE SODIUM PHOSPHATE [Suspect]
     Dosage: INTRAMUSCULAR
     Route: 030
     Dates: start: 20110101

REACTIONS (9)
  - HYPERTENSION [None]
  - POLYDIPSIA [None]
  - VISION BLURRED [None]
  - PALPITATIONS [None]
  - HYPOTENSION [None]
  - NAUSEA [None]
  - THIRST [None]
  - PAIN IN EXTREMITY [None]
  - DIZZINESS [None]
